FAERS Safety Report 8269854-5 (Version None)
Quarter: 2012Q2

REPORT INFORMATION
  Report Type: 
  Country: None (occurrence: None)
  Receive Date: 20120410
  Receipt Date: 20120330
  Transmission Date: 20120825
  Serious: Yes (Hospitalization)
  Sender: FDA-Public Use
  Company Number: CA-JNJFOC-20120400565

PATIENT
  Sex: Female

DRUGS (2)
  1. REMICADE [Suspect]
     Indication: PSORIASIS
     Route: 042
     Dates: start: 20090525
  2. REMICADE [Suspect]
     Route: 042
     Dates: start: 20120207

REACTIONS (3)
  - OROPHARYNGEAL PAIN [None]
  - HYPOTENSION [None]
  - ASTHENIA [None]
